FAERS Safety Report 11952669 (Version 1)
Quarter: 2016Q1

REPORT INFORMATION
  Report Type: Spontaneous
  Country: US (occurrence: US)
  Receive Date: 20160125
  Receipt Date: 20160125
  Transmission Date: 20160526
  Serious: Yes (Death)
  Sender: FDA-Public Use
  Company Number: US-BAUSCH-SYM-2014-15901

PATIENT
  Age: 84 Year
  Sex: Male

DRUGS (3)
  1. XENAZINE [Suspect]
     Active Substance: TETRABENAZINE
     Indication: HUNTINGTON^S DISEASE
     Route: 048
     Dates: start: 20140909, end: 20151023
  2. XENAZINE [Suspect]
     Active Substance: TETRABENAZINE
     Indication: NEOPLASM MALIGNANT
     Route: 048
     Dates: start: 201310
  3. XENAZINE [Suspect]
     Active Substance: TETRABENAZINE
     Indication: CHOREA
     Route: 048

REACTIONS (2)
  - Neoplasm malignant [Fatal]
  - Dizziness [Unknown]

NARRATIVE: CASE EVENT DATE: 20151130
